FAERS Safety Report 5796842-0 (Version None)
Quarter: 2008Q3

REPORT INFORMATION
  Report Type: 
  Country: None (occurrence: None)
  Receive Date: 20080701
  Receipt Date: 20080623
  Transmission Date: 20090109
  Serious: Yes (Hospitalization)
  Sender: FDA-Public Use
  Company Number: US-AMGEN-QUU289131

PATIENT
  Sex: Male

DRUGS (2)
  1. ENBREL [Suspect]
     Indication: PSORIASIS
     Route: 058
  2. ENBREL [Suspect]
     Indication: PSORIATIC ARTHROPATHY

REACTIONS (9)
  - GLUCOSE TOLERANCE IMPAIRED [None]
  - INJECTION SITE PAIN [None]
  - KIDNEY INFECTION [None]
  - NASOPHARYNGITIS [None]
  - OBESITY [None]
  - PSORIASIS [None]
  - PSORIATIC ARTHROPATHY [None]
  - SINUSITIS [None]
  - SLEEP APNOEA SYNDROME [None]
